FAERS Safety Report 21869938 (Version 1)
Quarter: 2023Q1

REPORT INFORMATION
  Report Type: Spontaneous
  Country: AU (occurrence: AU)
  Receive Date: 20230117
  Receipt Date: 20230117
  Transmission Date: 20230417
  Serious: Yes (Life-Threatening, Hospitalization, Other)
  Sender: FDA-Public Use
  Company Number: AU-DENTSPLY-2023SCDP000007

PATIENT
  Sex: Female
  Weight: 3.15 kg

DRUGS (1)
  1. LIDOCAINE [Suspect]
     Active Substance: LIDOCAINE
     Indication: Product used for unknown indication
     Dosage: 15 MILLILITER OF 2% LIGNOCAINE

REACTIONS (3)
  - Infantile apnoea [Recovered/Resolved]
  - Neonatal seizure [Recovered/Resolved]
  - Accidental exposure to product [Recovered/Resolved]
